FAERS Safety Report 6716481-4 (Version None)
Quarter: 2010Q2

REPORT INFORMATION
  Report Type: 
  Country: None (occurrence: None)
  Receive Date: 20100507
  Receipt Date: 20100430
  Transmission Date: 20101027
  Serious: Yes (Hospitalization)
  Sender: FDA-Public Use
  Company Number: PHHO2010AU04164

PATIENT
  Sex: Female

DRUGS (1)
  1. AFINITOR [Suspect]
     Indication: BILE DUCT CANCER
     Dosage: 10MG/DAY
     Route: 048
     Dates: start: 20100302

REACTIONS (2)
  - CONSTIPATION [None]
  - VOMITING [None]
